FAERS Safety Report 7359818-8 (Version None)
Quarter: 2011Q1

REPORT INFORMATION
  Report Type: 
  Country: None (occurrence: None)
  Receive Date: 20110317
  Receipt Date: 20110308
  Transmission Date: 20110831
  Serious: Yes (Other)
  Sender: FDA-Public Use
  Company Number: US-AMGEN-USASP2011003857

PATIENT
  Age: 7 Year
  Sex: Female

DRUGS (2)
  1. ENBREL [Suspect]
     Dosage: 25 MG, QWK
     Dates: start: 20100129
  2. ENBREL [Suspect]
     Indication: PSORIASIS
     Dosage: 25 MG, 2 TIMES/WK
     Dates: start: 20101219

REACTIONS (4)
  - INJECTION SITE PAIN [None]
  - RASH PRURITIC [None]
  - THERAPEUTIC RESPONSE DECREASED [None]
  - SKIN INFECTION [None]
